FAERS Safety Report 11257612 (Version 1)
Quarter: 2015Q3

REPORT INFORMATION
  Report Type: Spontaneous
  Country: US (occurrence: US)
  Receive Date: 20150710
  Receipt Date: 20150710
  Transmission Date: 20151125
  Serious: Yes (Other)
  Sender: FDA-Public Use
  Company Number: US-CIPLA LTD.-2015US05478

PATIENT

DRUGS (1)
  1. GEMCITABINE [Suspect]
     Active Substance: GEMCITABINE\GEMCITABINE HYDROCHLORIDE
     Indication: CHOLANGIOCARCINOMA
     Dosage: UNK
     Route: 065

REACTIONS (6)
  - Visual acuity reduced [Unknown]
  - Nephropathy [Unknown]
  - Retinopathy [Unknown]
  - Renal failure [Unknown]
  - Angiopathy [Unknown]
  - Retinal ischaemia [Unknown]
